FAERS Safety Report 22101768 (Version 2)
Quarter: 2023Q1

REPORT INFORMATION
  Report Type: Spontaneous
  Country: US (occurrence: US)
  Receive Date: 20230316
  Receipt Date: 20230330
  Transmission Date: 20230417
  Serious: Yes (Other)
  Sender: FDA-Public Use
  Company Number: US-TEVA-2023-US-2864922

PATIENT
  Age: 74 Year
  Sex: Male

DRUGS (8)
  1. LENALIDOMIDE [Suspect]
     Active Substance: LENALIDOMIDE
     Indication: Plasma cell myeloma
     Dosage: ON DAYS 1-21 OF A 28-DAY CYCLE, FREQUENCY TIME : CYCLICAL
     Route: 048
  2. LENALIDOMIDE [Suspect]
     Active Substance: LENALIDOMIDE
     Dosage: AS PART OF RVD REGIMEN, FREQUENCY TIME : CYCLICAL
     Route: 048
  3. LENALIDOMIDE [Suspect]
     Active Substance: LENALIDOMIDE
     Dosage: ON DAYS 1-21, FREQUENCY TIME : CYCLICAL
     Route: 048
  4. BORTEZOMIB [Suspect]
     Active Substance: BORTEZOMIB
     Indication: Plasma cell myeloma
     Dosage: AS PART OF RVD REGIMEN
     Route: 065
  5. IXAZOMIB [Suspect]
     Active Substance: IXAZOMIB
     Indication: Plasma cell myeloma
     Dosage: ON DAYS 1, 8, AND 15
     Route: 048
  6. DEXAMETHASONE [Concomitant]
     Active Substance: DEXAMETHASONE
     Indication: Plasma cell myeloma
     Route: 048
  7. DEXAMETHASONE [Concomitant]
     Active Substance: DEXAMETHASONE
     Dosage: AS PART OF RVD REGIMEN
     Route: 048
  8. DEXAMETHASONE [Concomitant]
     Active Substance: DEXAMETHASONE
     Dosage: ON DAYS 1, 8, 15, AND 22
     Route: 048

REACTIONS (2)
  - Cutaneous vasculitis [Recovered/Resolved]
  - Vasculitis necrotising [Recovered/Resolved]
